FAERS Safety Report 4365004-6 (Version None)
Quarter: 2004Q2

REPORT INFORMATION
  Report Type: 
  Country: None (occurrence: None)
  Receive Date: 20040521
  Receipt Date: 20040510
  Transmission Date: 20050107
  Serious: Yes (Other)
  Sender: FDA-Public Use
  Company Number: 2004212488US

PATIENT
  Age: 78 Year
  Sex: Male

DRUGS (6)
  1. DETROL [Suspect]
     Dates: start: 20030813
  2. PLAVIX [Concomitant]
  3. DIABETA [Concomitant]
  4. ZYLOPRIM [Concomitant]
  5. ASPIRIN [Concomitant]
  6. VITAMIN E [Concomitant]

REACTIONS (1)
  - CEREBROVASCULAR ACCIDENT [None]
